FAERS Safety Report 15057601 (Version 1)
Quarter: 2018Q2

REPORT INFORMATION
  Report Type: Spontaneous
  Country: ES (occurrence: ES)
  Receive Date: 20180625
  Receipt Date: 20180625
  Transmission Date: 20180711
  Serious: Yes (Death)
  Sender: FDA-Public Use
  Company Number: ES-BIOGEN-2018BI00599311

PATIENT

DRUGS (1)
  1. TECFIDERA [Suspect]
     Active Substance: DIMETHYL FUMARATE
     Indication: MATERNAL EXPOSURE TIMING UNSPECIFIED
     Dosage: MAINTENANCRE DOSE
     Route: 064
     Dates: end: 20180320

REACTIONS (2)
  - Foetal exposure during pregnancy [Recovered/Resolved]
  - Bradycardia [Fatal]

NARRATIVE: CASE EVENT DATE: 20180410
